FAERS Safety Report 6023699-5 (Version None)
Quarter: 2008Q4

REPORT INFORMATION
  Report Type: 
  Country: None (occurrence: None)
  Receive Date: 20081226
  Receipt Date: 20081226
  Transmission Date: 20090506
  Serious: No
  Sender: FDA-Public Use
  Company Number: None

PATIENT
  Age: 35 Year
  Sex: Female
  Weight: 75.7507 kg

DRUGS (1)
  1. ZYRTEC [Suspect]
     Indication: RHINITIS ALLERGIC
     Dosage: 10MG 1X DAILY PO
     Route: 048
     Dates: start: 20030101, end: 20081222

REACTIONS (4)
  - DERMATITIS ALLERGIC [None]
  - PRURITUS GENERALISED [None]
  - QUALITY OF LIFE DECREASED [None]
  - THINKING ABNORMAL [None]
